FAERS Safety Report 20718638 (Version 1)
Quarter: 2022Q2

REPORT INFORMATION
  Report Type: Spontaneous
  Country: US (occurrence: US)
  Receive Date: 20220418
  Receipt Date: 20220418
  Transmission Date: 20220721
  Serious: No
  Sender: FDA-Public Use
  Company Number: ALC2021US003187

PATIENT
  Sex: Female

DRUGS (1)
  1. TETRACAINE HCL [Suspect]
     Active Substance: TETRACAINE HYDROCHLORIDE
     Indication: Product used for unknown indication
     Dosage: UNK 0065074114
     Route: 047

REACTIONS (2)
  - Drug ineffective [Recovered/Resolved]
  - Eye irritation [Recovered/Resolved]
